FAERS Safety Report 5919520-3 (Version None)
Quarter: 2008Q4

REPORT INFORMATION
  Report Type: 
  Country: None (occurrence: None)
  Receive Date: 20081015
  Receipt Date: 20080721
  Transmission Date: 20090506
  Serious: Yes (Hospitalization)
  Sender: FDA-Public Use
  Company Number: FR-JNJFOC-20081002936

PATIENT
  Sex: Male

DRUGS (4)
  1. IXPRIM [Suspect]
     Indication: BACK PAIN
     Dosage: 37.5MG+325MG
     Route: 048
  2. CASODEX [Suspect]
     Indication: PROSTATE CANCER METASTATIC
     Route: 048
  3. BI-PROFENID [Concomitant]
     Indication: BACK PAIN
  4. DECAPEPTYL [Concomitant]
     Indication: PROSTATE CANCER

REACTIONS (3)
  - LEUKOPENIA [None]
  - THROMBOCYTOPENIA [None]
  - TRANSAMINASES INCREASED [None]
